FAERS Safety Report 22220869 (Version 1)
Quarter: 2023Q2

REPORT INFORMATION
  Report Type: Other
  Country: JP (occurrence: JP)
  Receive Date: 20230418
  Receipt Date: 20230418
  Transmission Date: 20230722
  Serious: Yes (Death, Other)
  Sender: FDA-Public Use
  Company Number: JP-CHUGAI-2023013280

PATIENT
  Age: 40 Year
  Sex: Female

DRUGS (12)
  1. AVASTIN [Suspect]
     Active Substance: BEVACIZUMAB
     Indication: Carcinoid tumour
     Dosage: UNK
     Route: 041
     Dates: start: 20180315, end: 201906
  2. AVASTIN [Suspect]
     Active Substance: BEVACIZUMAB
     Dosage: UNK
     Route: 041
     Dates: start: 20190712, end: 202001
  3. AVASTIN [Suspect]
     Active Substance: BEVACIZUMAB
     Dosage: UNK
     Route: 041
     Dates: start: 20200114, end: 202009
  4. OXALIPLATIN [Concomitant]
     Active Substance: OXALIPLATIN
     Indication: Carcinoid tumour
     Dosage: UNK
     Route: 041
     Dates: start: 20180315, end: 201906
  5. FLUOROURACIL [Concomitant]
     Active Substance: FLUOROURACIL
     Indication: Carcinoid tumour
     Dosage: UNK
     Route: 040
     Dates: start: 20180315, end: 201906
  6. FLUOROURACIL [Concomitant]
     Active Substance: FLUOROURACIL
     Dosage: UNK
     Route: 041
     Dates: start: 20180315, end: 201906
  7. FLUOROURACIL [Concomitant]
     Active Substance: FLUOROURACIL
     Dosage: UNK
     Route: 040
     Dates: start: 20190712, end: 202001
  8. FLUOROURACIL [Concomitant]
     Active Substance: FLUOROURACIL
     Dosage: UNK
     Route: 041
     Dates: start: 20190712, end: 202001
  9. LEVOLEUCOVORIN CALCIUM [Concomitant]
     Active Substance: LEVOLEUCOVORIN CALCIUM
     Indication: Carcinoid tumour
     Dosage: UNK
     Route: 041
     Dates: start: 20180315, end: 201906
  10. LEVOLEUCOVORIN CALCIUM [Concomitant]
     Active Substance: LEVOLEUCOVORIN CALCIUM
     Dosage: UNK
     Route: 041
     Dates: start: 20190712, end: 202001
  11. IRINOTECAN HYDROCHLORIDE [Concomitant]
     Active Substance: IRINOTECAN HYDROCHLORIDE
     Indication: Carcinoid tumour
     Dosage: UNK
     Route: 041
     Dates: start: 20190712, end: 202001
  12. TIPIRACIL HYDROCHLORIDE\TRIFLURIDINE [Concomitant]
     Active Substance: TIPIRACIL HYDROCHLORIDE\TRIFLURIDINE
     Indication: Carcinoid tumour
     Dosage: UNK
     Route: 048
     Dates: start: 20200114, end: 202009

REACTIONS (3)
  - Disease progression [Fatal]
  - Ascites [Unknown]
  - Off label use [Unknown]

NARRATIVE: CASE EVENT DATE: 20200101
